FAERS Safety Report 6993972-2 (Version None)
Quarter: 2010Q3

REPORT INFORMATION
  Report Type: 
  Country: None (occurrence: None)
  Receive Date: 20100917
  Receipt Date: 20100128
  Transmission Date: 20110219
  Serious: Yes (Other)
  Sender: FDA-Public Use
  Company Number: US-ASTRAZENECA-2007UW13978

PATIENT
  Age: 37 Year
  Sex: Female
  Weight: 78 kg

DRUGS (10)
  1. SEROQUEL [Suspect]
     Indication: BIPOLAR DISORDER
     Route: 048
     Dates: start: 20031201, end: 20050201
  2. SEROQUEL [Suspect]
     Indication: DEPRESSION
     Route: 048
     Dates: start: 20031201, end: 20050201
  3. SEROQUEL [Suspect]
     Indication: SLEEP DISORDER
     Route: 048
     Dates: start: 20031201, end: 20050201
  4. SEROQUEL [Suspect]
     Route: 048
     Dates: start: 20040101
  5. SEROQUEL [Suspect]
     Route: 048
     Dates: start: 20040101
  6. SEROQUEL [Suspect]
     Route: 048
     Dates: start: 20040101
  7. SEROQUEL [Suspect]
     Route: 048
     Dates: start: 20050801, end: 20060201
  8. SEROQUEL [Suspect]
     Route: 048
     Dates: start: 20050801, end: 20060201
  9. SEROQUEL [Suspect]
     Route: 048
     Dates: start: 20050801, end: 20060201
  10. ABILIFY [Concomitant]

REACTIONS (4)
  - BONE DISORDER [None]
  - DIABETES MELLITUS INADEQUATE CONTROL [None]
  - TYPE 2 DIABETES MELLITUS [None]
  - ULCER [None]
